FAERS Safety Report 11494750 (Version 3)
Quarter: 2015Q4

REPORT INFORMATION
  Report Type: Report from Study
  Country: US (occurrence: US)
  Receive Date: 20150911
  Receipt Date: 20151012
  Transmission Date: 20160304
  Serious: No
  Sender: FDA-Public Use
  Company Number: US-AMGEN-USASP2015093613

PATIENT
  Age: 57 Year
  Sex: Female

DRUGS (1)
  1. ENBREL [Suspect]
     Active Substance: ETANERCEPT
     Indication: RHEUMATOID ARTHRITIS
     Dosage: UNK UNK, UNK
     Route: 065
     Dates: start: 20130718

REACTIONS (9)
  - Musculoskeletal discomfort [Unknown]
  - Fear of injection [Unknown]
  - Feeling abnormal [Unknown]
  - Intentional product misuse [Unknown]
  - Paraesthesia [Unknown]
  - Pain [Unknown]
  - Limb discomfort [Recovering/Resolving]
  - Carpal tunnel syndrome [Unknown]
  - Arthralgia [Unknown]

NARRATIVE: CASE EVENT DATE: 2015
